FAERS Safety Report 8118237-7 (Version None)
Quarter: 2012Q1

REPORT INFORMATION
  Report Type: 
  Country: None (occurrence: None)
  Receive Date: 20120201
  Receipt Date: 20120120
  Transmission Date: 20120608
  Serious: Yes (Other)
  Sender: FDA-Public Use
  Company Number: 1000027508

PATIENT
  Age: 88 Year
  Sex: Female

DRUGS (2)
  1. ESCITALOPRAM OXALATE [Suspect]
     Dosage: 5 MG (5 MG, 1 IN 1 D)
  2. MICONAZOLE [Suspect]
     Dosage: 50 MG (50 MG, 1 IN 1 D)

REACTIONS (3)
  - DRUG INTERACTION [None]
  - BLOOD SODIUM DECREASED [None]
  - SEROTONIN SYNDROME [None]
